FAERS Safety Report 4371322-8 (Version None)
Quarter: 2004Q2

REPORT INFORMATION
  Report Type: 
  Country: None (occurrence: None)
  Receive Date: 20040603
  Receipt Date: 20040521
  Transmission Date: 20050107
  Serious: No
  Sender: FDA-Public Use
  Company Number: 2004UW10775

PATIENT
  Age: 62 Year
  Sex: Female
  Weight: 104.3273 kg

DRUGS (2)
  1. ARIMIDEX [Suspect]
     Indication: BREAST CANCER
     Dosage: 1 MG DAILY PO
     Route: 048
     Dates: start: 20020101, end: 20040101
  2. PAIN KILLER [Concomitant]

REACTIONS (2)
  - ARTHRALGIA [None]
  - RETINAL TEAR [None]
